FAERS Safety Report 14596120 (Version 1)
Quarter: 2018Q1

REPORT INFORMATION
  Report Type: Spontaneous
  Country: DK (occurrence: DK)
  Receive Date: 20180303
  Receipt Date: 20180303
  Transmission Date: 20180509
  Serious: Yes (Other)
  Sender: FDA-Public Use
  Company Number: DK-GLAXOSMITHKLINE-DK2018031970

PATIENT
  Age: 35 Year
  Sex: Male

DRUGS (6)
  1. NUCALA [Suspect]
     Active Substance: MEPOLIZUMAB
     Indication: ASTHMA
     Dosage: DOSIS: 1 INJEKTION HVER 4. UGE, STYRKE: 100 MG
     Route: 058
     Dates: start: 20171026
  2. LANSOPRAZOL MEDICAL VALLEY [Concomitant]
     Indication: GASTRITIS
     Dosage: STYRKE: 30 MG
     Route: 048
     Dates: start: 20150526
  3. PREDNISOLON DAK [Concomitant]
     Active Substance: PREDNISOLONE
     Indication: ASTHMA
     Dosage: STYRKE: 5 MG
     Route: 048
     Dates: start: 20170822
  4. BUDESONID SANDOZ [Concomitant]
     Indication: SINUSITIS
     Dosage: STYRKE 64 ?G/ DOSIS. DOSIS: 2 PUST I HVERT N?SEBOR 2 GANGE DAGLIGT
     Route: 045
     Dates: start: 20130314
  5. FLUTIFORM [Concomitant]
     Active Substance: FLUTICASONE PROPIONATE\FORMOTEROL FUMARATE
     Indication: ASTHMA
     Dosage: STYRKE: 250+10 ?G / DOSIS
     Route: 055
     Dates: start: 20160226
  6. VENTOLINE [Concomitant]
     Active Substance: ALBUTEROL
     Indication: ASTHMA
     Dosage: STYRKE: 0,1 MG/DOSIS. DOSIS: 1 PUST VED BEHOV ELLER F?R ANSTRENGELSE H?JST 6 GANGE DAGLIGT
     Route: 055

REACTIONS (1)
  - Pneumonia [Recovered/Resolved]

NARRATIVE: CASE EVENT DATE: 20171106
